FAERS Safety Report 10664104 (Version 1)
Quarter: 2014Q4

REPORT INFORMATION
  Report Type: Report from Study
  Country: GB (occurrence: GB)
  Receive Date: 20141219
  Receipt Date: 20141219
  Transmission Date: 20150529
  Serious: Yes (Hospitalization)
  Sender: FDA-Public Use
  Company Number: GB-JNJFOC-20141204884

PATIENT
  Age: 51 Year
  Sex: Male
  Weight: 74.7 kg

DRUGS (5)
  1. DOVOBET [Concomitant]
     Active Substance: BETAMETHASONE\CALCIPOTRIENE
     Route: 065
     Dates: start: 20090912
  2. STELARA [Suspect]
     Active Substance: USTEKINUMAB
     Indication: PSORIASIS
     Route: 058
     Dates: start: 20120525
  3. FUMARIC ACID [Concomitant]
     Active Substance: FUMARIC ACID
     Route: 065
     Dates: start: 20100104
  4. PARACETAMOL [Concomitant]
     Active Substance: ACETAMINOPHEN
     Route: 065
     Dates: start: 20120803
  5. DOVONEX [Concomitant]
     Active Substance: CALCIPOTRIENE
     Route: 065
     Dates: start: 20090912

REACTIONS (3)
  - Tympanoplasty [Recovered/Resolved]
  - Mastoidectomy [Recovered/Resolved]
  - Ossiculoplasty [Recovered/Resolved]

NARRATIVE: CASE EVENT DATE: 20140422
